FAERS Safety Report 10487655 (Version 1)
Quarter: 2014Q4

REPORT INFORMATION
  Report Type: Spontaneous
  Country: DK (occurrence: FR)
  Receive Date: 20141001
  Receipt Date: 20141001
  Transmission Date: 20150528
  Serious: Yes (Congenital Anomaly)
  Sender: FDA-Public Use
  Company Number: FR-FRI-1000071153

PATIENT
  Sex: Female

DRUGS (5)
  1. STILNOX [Suspect]
     Active Substance: ZOLPIDEM TARTRATE
     Dosage: 10 MG
     Route: 064
     Dates: start: 201309, end: 201311
  2. ATARAX [Suspect]
     Active Substance: HYDROXYZINE\HYDROXYZINE HYDROCHLORIDE
     Route: 064
     Dates: end: 20131115
  3. LEXOMIL [Suspect]
     Active Substance: BROMAZEPAM
     Route: 064
     Dates: start: 201309, end: 201311
  4. CIRCADIN [Suspect]
     Active Substance: MELATONIN
     Dosage: 10 MG
     Route: 064
     Dates: end: 20131115
  5. ESCITALOPRAM [Suspect]
     Active Substance: ESCITALOPRAM OXALATE
     Dosage: 10 MG
     Route: 064
     Dates: end: 20131115

REACTIONS (2)
  - Exposure during pregnancy [Recovered/Resolved with Sequelae]
  - Atrioventricular septal defect [Recovered/Resolved with Sequelae]

NARRATIVE: CASE EVENT DATE: 2014
